FAERS Safety Report 4295649-3 (Version None)
Quarter: 2004Q1

REPORT INFORMATION
  Report Type: 
  Country: None (occurrence: None)
  Receive Date: 20040216
  Receipt Date: 20030806
  Transmission Date: 20041129
  Serious: No
  Sender: FDA-Public Use
  Company Number: US-GLAXOSMITHKLINE-A0419801A

PATIENT
  Age: 56 Year
  Sex: Male

DRUGS (3)
  1. PAXIL [Suspect]
     Indication: ANXIETY
     Dosage: 20MG PER DAY
     Route: 048
     Dates: start: 20030101
  2. PREVACID [Concomitant]
  3. ALEVE [Concomitant]

REACTIONS (1)
  - TINNITUS [None]
